FAERS Safety Report 7497115-0 (Version None)
Quarter: 2011Q2

REPORT INFORMATION
  Report Type: 
  Country: None (occurrence: None)
  Receive Date: 20110523
  Receipt Date: 20110513
  Transmission Date: 20111010
  Serious: Yes (Hospitalization)
  Sender: FDA-Public Use
  Company Number: PHHY2011BE41807

PATIENT
  Age: 80 Year
  Sex: Male

DRUGS (8)
  1. OLANZAPINE [Suspect]
  2. BISOPROLOL FUMARATE [Suspect]
  3. TERAZOSIN HCL [Concomitant]
  4. FUROSEMIDE [Interacting]
     Dosage: 40 MG/DAY
  5. FELODIPINE [Concomitant]
  6. LITHIUM [Interacting]
     Indication: BIPOLAR DISORDER
     Dosage: 250 MG, TID
  7. CETIRIZINE HCL [Concomitant]
  8. POLYETHYLENE GLYCOL [Concomitant]

REACTIONS (11)
  - DRUG INTERACTION [None]
  - NEPHROGENIC DIABETES INSIPIDUS [None]
  - DIARRHOEA [None]
  - DEHYDRATION [None]
  - ABDOMINAL DISTENSION [None]
  - PYREXIA [None]
  - SOMNOLENCE [None]
  - TOXICITY TO VARIOUS AGENTS [None]
  - CAMPYLOBACTER GASTROENTERITIS [None]
  - RENAL FAILURE [None]
  - MYOCLONUS [None]
